FAERS Safety Report 10302791 (Version 1)
Quarter: 2014Q3

REPORT INFORMATION
  Report Type: Report from Study
  Country: US (occurrence: US)
  Receive Date: 20140714
  Receipt Date: 20140714
  Transmission Date: 20150326
  Serious: Yes (Other)
  Sender: FDA-Public Use
  Company Number: PHEH2014US013811

PATIENT
  Sex: Female
  Weight: 76.87 kg

DRUGS (4)
  1. VALIUM [Concomitant]
     Active Substance: DIAZEPAM
  2. EFFEXOR [Concomitant]
     Active Substance: VENLAFAXINE HYDROCHLORIDE
     Indication: DEPRESSION
     Dosage: 250 MG, DAILY
  3. VITAMIN D [Concomitant]
     Active Substance: CHOLECALCIFEROL
  4. GILENYA [Suspect]
     Active Substance: FINGOLIMOD HYDROCHLORIDE
     Indication: MULTIPLE SCLEROSIS
     Dosage: 0.5 MG, QD
     Route: 048
     Dates: start: 20120828

REACTIONS (9)
  - Fatigue [Unknown]
  - Depression [Unknown]
  - Muscular weakness [Unknown]
  - Anxiety [Unknown]
  - Urethral syndrome [Unknown]
  - Weight increased [Unknown]
  - Alopecia [Unknown]
  - Dyspnoea exertional [Unknown]
  - Nephrolithiasis [Unknown]
